FAERS Safety Report 8344544-9 (Version None)
Quarter: 2012Q2

REPORT INFORMATION
  Report Type: 
  Country: None (occurrence: None)
  Receive Date: 20120508
  Receipt Date: 20120502
  Transmission Date: 20120825
  Serious: Yes (Hospitalization)
  Sender: FDA-Public Use
  Company Number: DE-PFIZER INC-2012092232

PATIENT
  Age: 70 Year
  Sex: Female
  Weight: 65 kg

DRUGS (8)
  1. GEMTUZUMAB OZOGAMICIN [Suspect]
     Indication: ACUTE MYELOID LEUKAEMIA
     Dosage: 5.07 MG, 1X/DAY
     Dates: start: 20110908, end: 20110908
  2. IDARUBICIN [Concomitant]
     Indication: ACUTE MYELOID LEUKAEMIA
     Dosage: 20.18 MG, 1X/DAY
     Dates: start: 20110908, end: 20110910
  3. TRETINOIN [Concomitant]
     Indication: ACUTE MYELOID LEUKAEMIA
     Dosage: 75 MG/30 MG, 1X/DAY
     Dates: start: 20110913, end: 20110928
  4. CYTARABINE [Concomitant]
     Indication: ACUTE MYELOID LEUKAEMIA
     Dosage: 169 MG, 1X/DAY
     Dates: start: 20110908, end: 20110914
  5. NORVASC [Concomitant]
     Indication: HYPERTENSION
     Dosage: 5 MG, 1X/DAY
     Route: 048
     Dates: start: 20110921, end: 20111008
  6. RAMIPRIL [Concomitant]
     Indication: HYPERTENSION
     Dosage: 2.5 MG, 1X/DAY
     Route: 048
     Dates: start: 20110924, end: 20111008
  7. ETOPOSIDE [Concomitant]
     Indication: ACUTE MYELOID LEUKAEMIA
     Dosage: 169 MG, 1X/DAY
     Dates: start: 20110908, end: 20110910
  8. ZYVOX [Suspect]
     Indication: INFECTION PROPHYLAXIS
     Dosage: 1200 MG, 1X/DAY
     Route: 048
     Dates: start: 20111001, end: 20111008

REACTIONS (1)
  - LIP SWELLING [None]
